FAERS Safety Report 7682034-7 (Version None)
Quarter: 2011Q3

REPORT INFORMATION
  Report Type: 
  Country: None (occurrence: None)
  Receive Date: 20110815
  Receipt Date: 20110802
  Transmission Date: 20111222
  Serious: Yes (Hospitalization)
  Sender: FDA-Public Use
  Company Number: US-ELI_LILLY_AND_COMPANY-US201103001698

PATIENT
  Sex: Female

DRUGS (4)
  1. FORTEO [Suspect]
     Indication: OSTEOPOROSIS
     Dosage: 20 UG, DAILY (1/D)
     Route: 065
     Dates: start: 20110201
  2. CONTRAST MEDIA [Concomitant]
     Indication: SCAN
  3. FORTEO [Suspect]
     Dosage: 20 UG, QD
  4. FORTEO [Suspect]
     Dosage: 20 UG, QD
     Route: 065

REACTIONS (12)
  - SINUSITIS [None]
  - BACK INJURY [None]
  - INFLUENZA [None]
  - VOMITING [None]
  - GRIEF REACTION [None]
  - DIARRHOEA [None]
  - OEDEMA PERIPHERAL [None]
  - PYREXIA [None]
  - DRUG ADMINISTRATION ERROR [None]
  - ANXIETY [None]
  - PAIN [None]
  - NASOPHARYNGITIS [None]
